FAERS Safety Report 11934501 (Version 2)
Quarter: 2016Q1

REPORT INFORMATION
  Report Type: Report from Study
  Country: BR (occurrence: BR)
  Receive Date: 20160121
  Receipt Date: 20160205
  Transmission Date: 20160526
  Serious: Yes (Death, Hospitalization, Other)
  Sender: FDA-Public Use
  Company Number: PHHY2016BR006866

PATIENT
  Age: 62 Year
  Sex: Male
  Weight: 53 kg

DRUGS (1)
  1. TASIGNA [Suspect]
     Active Substance: NILOTINIB
     Indication: ACUTE MYELOID LEUKAEMIA
     Dosage: 2 DF OF 200 MG, QD
     Route: 048

REACTIONS (8)
  - Malignant neoplasm progression [Fatal]
  - Blood pressure decreased [Unknown]
  - Pneumonia [Unknown]
  - Chronic kidney disease [Fatal]
  - Diabetes mellitus [Fatal]
  - Hypertension [Fatal]
  - Renal impairment [Fatal]
  - Acute myeloid leukaemia [Fatal]

NARRATIVE: CASE EVENT DATE: 20151230
